FAERS Safety Report 8515922-X (Version None)
Quarter: 2012Q3

REPORT INFORMATION
  Report Type: 
  Country: None (occurrence: None)
  Receive Date: 20120717
  Receipt Date: 20120716
  Transmission Date: 20120928
  Serious: Yes (Hospitalization, Other)
  Sender: FDA-Public Use
  Company Number: BE-ABBOTT-12P-013-0926007-00

PATIENT
  Age: 52 Year
  Sex: Male
  Weight: 79 kg

DRUGS (5)
  1. SEDACID [Concomitant]
     Indication: PRODUCT USED FOR UNKNOWN INDICATION
  2. HUMIRA [Suspect]
     Dates: start: 20110719, end: 20120327
  3. SEDACID [Concomitant]
     Dates: start: 20120314, end: 20120327
  4. AMLODIPINE BESYLATE [Concomitant]
     Indication: PRODUCT USED FOR UNKNOWN INDICATION
     Dates: start: 20101001, end: 20110901
  5. HUMIRA [Suspect]
     Indication: PSORIASIS
     Dates: start: 20110712, end: 20110712

REACTIONS (19)
  - ASCITES [None]
  - GENERAL PHYSICAL HEALTH DETERIORATION [None]
  - OEDEMA PERIPHERAL [None]
  - HAEMATEMESIS [None]
  - CHEST PAIN [None]
  - ALCOHOLISM [None]
  - VARICES OESOPHAGEAL [None]
  - VOMITING [None]
  - HEPATIC CIRRHOSIS [None]
  - HEPATIC FIBROSIS [None]
  - DYSPNOEA [None]
  - RALES [None]
  - AORTIC VALVE INCOMPETENCE [None]
  - DECREASED APPETITE [None]
  - NAUSEA [None]
  - OCULAR ICTERUS [None]
  - SINUS TACHYCARDIA [None]
  - MITRAL VALVE INCOMPETENCE [None]
  - ABDOMINAL DISTENSION [None]
